FAERS Safety Report 25022167 (Version 1)
Quarter: 2025Q1

REPORT INFORMATION
  Report Type: Spontaneous
  Country: US (occurrence: US)
  Receive Date: 20250228
  Receipt Date: 20250228
  Transmission Date: 20250409
  Serious: Yes (Other)
  Sender: SANOFI AVENTIS
  Company Number: US-SANOFI-02414429

PATIENT
  Age: 70 Year
  Sex: Female

DRUGS (3)
  1. TOUJEO [Suspect]
     Active Substance: INSULIN GLARGINE
     Indication: Type 2 diabetes mellitus
     Route: 065
     Dates: end: 2024
  2. TOUJEO [Suspect]
     Active Substance: INSULIN GLARGINE
     Dosage: 10 IU, Q12H
     Route: 065
     Dates: start: 20250212, end: 20250213
  3. MOUNJARO [Suspect]
     Active Substance: TIRZEPATIDE
     Indication: Type 2 diabetes mellitus
     Route: 065
     Dates: start: 2024

REACTIONS (13)
  - Systemic lupus erythematosus [Unknown]
  - Butterfly rash [Unknown]
  - Blood pressure increased [Unknown]
  - Blood bilirubin increased [Unknown]
  - Weight decreased [Unknown]
  - Arthralgia [Unknown]
  - Condition aggravated [Unknown]
  - Blood glucose increased [Recovering/Resolving]
  - Condition aggravated [Recovering/Resolving]
  - Headache [Recovering/Resolving]
  - Blood glucose decreased [Unknown]
  - Drug effect less than expected [Unknown]
  - Intentional product misuse [Unknown]

NARRATIVE: CASE EVENT DATE: 20240101
